FAERS Safety Report 23773909 (Version 1)
Quarter: 2024Q2

REPORT INFORMATION
  Report Type: Spontaneous
  Country: US (occurrence: US)
  Receive Date: 20240423
  Receipt Date: 20240423
  Transmission Date: 20240716
  Serious: No
  Sender: FDA-Public Use
  Company Number: US-PFIZER INC-202400091005

PATIENT
  Age: 11 Year
  Sex: Male

DRUGS (1)
  1. OXBRYTA [Suspect]
     Active Substance: VOXELOTOR
     Dosage: 300 MG, TAKE 3 TABLETS, ONCE DAILY, ORALLY.
     Route: 048
     Dates: start: 20240224, end: 20240225

REACTIONS (1)
  - Dysphagia [Unknown]
